FAERS Safety Report 10646897 (Version 1)
Quarter: 2014Q4

REPORT INFORMATION
  Report Type: Spontaneous
  Country: FR (occurrence: FR)
  Receive Date: 20141211
  Receipt Date: 20141211
  Transmission Date: 20150529
  Serious: Yes (Hospitalization)
  Sender: FDA-Public Use
  Company Number: FR-ASTRAZENECA-2014SE93613

PATIENT
  Age: 4750 Day
  Sex: Female
  Weight: 58 kg

DRUGS (11)
  1. NEORAL [Suspect]
     Active Substance: CYCLOSPORINE
     Indication: APLASTIC ANAEMIA
     Route: 065
     Dates: start: 20140716
  2. NEORAL [Suspect]
     Active Substance: CYCLOSPORINE
     Indication: APLASTIC ANAEMIA
     Route: 048
     Dates: end: 20140715
  3. POSACONAZOLE [Suspect]
     Active Substance: POSACONAZOLE
  4. ZELITREX [Suspect]
     Active Substance: VALACYCLOVIR HYDROCHLORIDE
     Route: 065
  5. LUTHENYL [Concomitant]
  6. ATGAM [Suspect]
     Active Substance: EQUINE THYMOCYTE IMMUNE GLOBULIN
     Indication: APLASTIC ANAEMIA
     Dosage: 50 MG/ML, 2000 MG DAILY
     Route: 042
     Dates: start: 20140426, end: 20140427
  7. NEORAL [Suspect]
     Active Substance: CYCLOSPORINE
     Indication: APLASTIC ANAEMIA
     Route: 065
  8. ATGAM [Suspect]
     Active Substance: EQUINE THYMOCYTE IMMUNE GLOBULIN
     Indication: APLASTIC ANAEMIA
     Dosage: 50 MG/ML, 2250 MG DAILY
     Route: 042
     Dates: start: 20140424, end: 20140425
  9. NEORAL [Suspect]
     Active Substance: CYCLOSPORINE
     Indication: APLASTIC ANAEMIA
     Route: 048
     Dates: start: 20140429
  10. INEXIUM [Suspect]
     Active Substance: ESOMEPRAZOLE
     Route: 065
  11. DUPHALAC [Concomitant]
     Active Substance: LACTULOSE
     Dosage: 2 SACHETS PER DAY

REACTIONS (10)
  - Hyperthermia [Recovered/Resolved]
  - Acute kidney injury [Recovering/Resolving]
  - Vomiting [Unknown]
  - Glomerulonephropathy [Unknown]
  - Renal tubular disorder [Unknown]
  - Hypertension [Recovering/Resolving]
  - Febrile bone marrow aplasia [Recovered/Resolved]
  - Abdominal pain upper [Unknown]
  - Rhinitis [Not Recovered/Not Resolved]
  - Protein urine present [Unknown]

NARRATIVE: CASE EVENT DATE: 20140425
